FAERS Safety Report 10075103 (Version 2)
Quarter: 2014Q2

REPORT INFORMATION
  Report Type: Spontaneous
  Country: US (occurrence: US)
  Receive Date: 20140414
  Receipt Date: 20140519
  Transmission Date: 20141212
  Serious: No
  Sender: FDA-Public Use
  Company Number: US-BIOGENIDEC-2014BI029620

PATIENT
  Age: 65 Year
  Sex: Female

DRUGS (6)
  1. TECFIDERA [Suspect]
     Indication: RELAPSING-REMITTING MULTIPLE SCLEROSIS
     Dates: start: 201401, end: 201403
  2. TECFIDERA [Suspect]
     Indication: RELAPSING-REMITTING MULTIPLE SCLEROSIS
     Route: 048
  3. TECFIDERA [Suspect]
     Indication: RELAPSING-REMITTING MULTIPLE SCLEROSIS
     Dates: start: 20140127
  4. AVONEX [Concomitant]
     Route: 030
     Dates: start: 20010624
  5. AVONEX [Concomitant]
     Route: 030
  6. AVONEX [Concomitant]
     Route: 030

REACTIONS (6)
  - Multiple sclerosis [Recovered/Resolved]
  - Insomnia [Recovered/Resolved]
  - Fatigue [Not Recovered/Not Resolved]
  - General symptom [Recovered/Resolved]
  - Oesophageal pain [Not Recovered/Not Resolved]
  - Diarrhoea [Recovered/Resolved]
